FAERS Safety Report 20445080 (Version 1)
Quarter: 2022Q1

REPORT INFORMATION
  Report Type: Report from Study
  Country: US (occurrence: None)
  Receive Date: 20220208
  Receipt Date: 20220208
  Transmission Date: 20220424
  Serious: Yes (Death, Hospitalization, Other)
  Sender: FDA-Public Use
  Company Number: US-ROCHE-1376023

PATIENT
  Age: 74 Year
  Sex: Male
  Weight: 81.36 kg

DRUGS (3)
  1. BEVACIZUMAB [Suspect]
     Active Substance: BEVACIZUMAB
     Indication: Head and neck cancer metastatic
     Dosage: OVER 30-90 MIN, DAY 1, TOTAL DOSE 1225 MG
     Route: 042
     Dates: start: 20140204
  2. DOCETAXEL [Suspect]
     Active Substance: DOCETAXEL
     Indication: Head and neck cancer metastatic
     Dosage: OVER 1 HR, DAY 1
     Route: 042
     Dates: start: 20140204
  3. CARBOPLATIN [Suspect]
     Active Substance: CARBOPLATIN
     Indication: Head and neck cancer metastatic
     Dosage: AUC 6, OVER 30 MINUTES, DAY 1
     Route: 042
     Dates: start: 20140204

REACTIONS (4)
  - Neutrophil count decreased [Fatal]
  - Platelet count decreased [Recovered/Resolved]
  - White blood cell count decreased [Not Recovered/Not Resolved]
  - Oesophageal fistula [Fatal]

NARRATIVE: CASE EVENT DATE: 20140210
